FAERS Safety Report 24936650 (Version 1)
Quarter: 2025Q1

REPORT INFORMATION
  Report Type: Spontaneous
  Country: TR (occurrence: TR)
  Receive Date: 20250206
  Receipt Date: 20250206
  Transmission Date: 20250408
  Serious: Yes (Hospitalization, Other)
  Sender: AMGEN
  Company Number: TR-AMGEN-TURSP2025017983

PATIENT
  Age: 9 Year
  Sex: Female

DRUGS (4)
  1. XGEVA [Suspect]
     Active Substance: DENOSUMAB
     Indication: Bone giant cell tumour
     Dosage: 120 MICROGRAM, Q4WK
     Route: 065
  2. CALCIUM [Concomitant]
     Active Substance: CALCIUM
  3. CALCIUM [Concomitant]
     Active Substance: CALCIUM
     Dosage: 50 MILLIGRAM/KILOGRAM, QD
  4. VITAMIN D [Concomitant]
     Active Substance: VITAMIN D NOS

REACTIONS (5)
  - Hypercalcaemia [Recovered/Resolved]
  - Blood alkaline phosphatase decreased [Unknown]
  - Blood parathyroid hormone decreased [Unknown]
  - Blood phosphorus decreased [Unknown]
  - Hypocalcaemia [Recovered/Resolved]
